FAERS Safety Report 6325393-X (Version None)
Quarter: 2009Q3

REPORT INFORMATION
  Report Type: 
  Country: None (occurrence: None)
  Receive Date: 20090824
  Receipt Date: 20090817
  Transmission Date: 20100115
  Serious: Yes (Death)
  Sender: FDA-Public Use
  Company Number: PH-AVENTIS-200918939GDDC

PATIENT
  Sex: Female
  Weight: 65 kg

DRUGS (6)
  1. LANTUS [Suspect]
     Route: 058
  2. VIDASTAT [Concomitant]
  3. VIDASTAT [Concomitant]
  4. ISORDIL [Concomitant]
  5. ASPIRIN [Concomitant]
  6. GLUCOPHAGE [Concomitant]

REACTIONS (1)
  - DEATH [None]
